FAERS Safety Report 7813333-3 (Version None)
Quarter: 2011Q4

REPORT INFORMATION
  Report Type: 
  Country: None (occurrence: None)
  Receive Date: 20111013
  Receipt Date: 20111009
  Transmission Date: 20120403
  Serious: Yes (Hospitalization)
  Sender: FDA-Public Use
  Company Number: CN-ROCHE-1003216

PATIENT
  Sex: Male
  Weight: 56 kg

DRUGS (6)
  1. PROGRAF [Concomitant]
     Indication: RENAL TRANSPLANT
     Route: 048
     Dates: start: 19951118
  2. PREDNISONE [Concomitant]
     Indication: RENAL TRANSPLANT
     Route: 048
     Dates: start: 19951118
  3. PREDNISONE [Concomitant]
     Route: 048
     Dates: end: 20110401
  4. MYCOPHENOLATE MOFETIL (CELLCEPT) [Suspect]
     Indication: RENAL TRANSPLANT
     Route: 048
     Dates: start: 19951118
  5. MYCOPHENOLATE MOFETIL (CELLCEPT) [Suspect]
     Route: 048
     Dates: end: 20110401
  6. PROGRAF [Concomitant]
     Route: 048
     Dates: end: 20110401

REACTIONS (1)
  - KIDNEY TRANSPLANT REJECTION [None]
